FAERS Safety Report 8835558 (Version 2)
Quarter: 2012Q4

REPORT INFORMATION
  Report Type: 
  Country: US (occurrence: US)
  Receive Date: 20121011
  Receipt Date: 20121105
  Transmission Date: 20130627
  Serious: Yes (Hospitalization, Other)
  Sender: FDA-Public Use
  Company Number: US-PFIZER INC-2012251500

PATIENT
  Age: 57 Year
  Sex: Female
  Weight: 68.03 kg

DRUGS (9)
  1. RAPAMUNE [Suspect]
     Indication: KIDNEY TRANSPLANT
     Dosage: 2 mg, 1x/day
     Route: 048
     Dates: start: 200303, end: 201209
  2. RAPAMUNE [Suspect]
     Dosage: 1 mg, 1x/day
     Route: 048
     Dates: start: 201209
  3. FUROSEMIDE [Concomitant]
     Dosage: UNK
  4. DIOVANE [Concomitant]
     Dosage: UNK
  5. POTASSIUM [Concomitant]
     Dosage: UNK
  6. OMEPRAZOLE [Concomitant]
     Dosage: UNK
  7. FLUCONAZOLE [Concomitant]
     Dosage: UNK
  8. HUMALOG [Concomitant]
     Indication: DIABETES
     Dosage: UNK
  9. FOLIC ACID [Concomitant]
     Dosage: UNK

REACTIONS (2)
  - Sickle cell anaemia with crisis [Unknown]
  - Sickle cell anaemia with crisis [Unknown]
